FAERS Safety Report 6683135-2 (Version None)
Quarter: 2010Q2

REPORT INFORMATION
  Report Type: 
  Country: None (occurrence: None)
  Receive Date: 20100415
  Receipt Date: 20100414
  Transmission Date: 20101027
  Serious: Yes (Other)
  Sender: FDA-Public Use
  Company Number: CHPA2010DE05832

PATIENT
  Sex: Female
  Weight: 63 kg

DRUGS (1)
  1. OTRIVEN (NCH) [Suspect]
     Indication: RHINITIS
     Dosage: UNK, UNK
     Route: 045
     Dates: start: 20030101, end: 20091001

REACTIONS (5)
  - DRUG DEPENDENCE, ANTEPARTUM [None]
  - DRUG EXPOSURE DURING PREGNANCY [None]
  - NASAL CONGESTION [None]
  - NORMAL NEWBORN [None]
  - PLASTIC SURGERY [None]
